FAERS Safety Report 7934141-9 (Version None)
Quarter: 2011Q4

REPORT INFORMATION
  Report Type: 
  Country: None (occurrence: None)
  Receive Date: 20111122
  Receipt Date: 20111108
  Transmission Date: 20120403
  Serious: Yes (Other)
  Sender: FDA-Public Use
  Company Number: FR-CELGENEUS-056-21880-11111480

PATIENT
  Age: 68 Year
  Sex: Female

DRUGS (3)
  1. REVLIMID [Suspect]
     Dosage: 10 MILLIGRAM
     Route: 048
     Dates: end: 20110601
  2. LOVENOX [Suspect]
     Indication: THROMBOSIS PROPHYLAXIS
     Route: 065
  3. REVLIMID [Suspect]
     Indication: MULTIPLE MYELOMA
     Dosage: 25 MILLIGRAM
     Route: 048
     Dates: start: 20110401

REACTIONS (3)
  - NO THERAPEUTIC RESPONSE [None]
  - GASTROINTESTINAL DISORDER [None]
  - DRUG INTOLERANCE [None]
